FAERS Safety Report 7661226-7 (Version None)
Quarter: 2011Q3

REPORT INFORMATION
  Report Type: 
  Country: None (occurrence: None)
  Receive Date: 20110805
  Receipt Date: 20101111
  Transmission Date: 20111222
  Serious: No
  Sender: FDA-Public Use
  Company Number: US-ABBOTT-10P-163-0685347-00

PATIENT
  Age: 66 Year
  Sex: Male

DRUGS (9)
  1. NIASPAN [Suspect]
     Indication: HYPERLIPIDAEMIA
  2. PREDNISONE [Concomitant]
     Indication: POLYMYALGIA RHEUMATICA
  3. NIASPAN [Suspect]
  4. AMLODIPINE [Suspect]
     Indication: HYPERTENSION
  5. BENICAR [Concomitant]
     Indication: HYPERTENSION
  6. NIASPAN [Suspect]
  7. NIASPAN [Suspect]
  8. NIASPAN [Suspect]
  9. AZOR [Concomitant]
     Indication: HYPERTENSION

REACTIONS (1)
  - HEART RATE INCREASED [None]
